FAERS Safety Report 9553737 (Version 1)
Quarter: 2013Q3

REPORT INFORMATION
  Report Type: Spontaneous
  Country: FR (occurrence: FR)
  Receive Date: 20130925
  Receipt Date: 20130925
  Transmission Date: 20140515
  Serious: Yes (Hospitalization, Other)
  Sender: FDA-Public Use
  Company Number: FR-JNJFOC-20130911973

PATIENT
  Age: 84 Year
  Sex: Male

DRUGS (5)
  1. RISPERDAL [Suspect]
     Indication: ABNORMAL BEHAVIOUR
     Route: 048
     Dates: end: 20120918
  2. OXYNORM [Suspect]
     Indication: SPINAL COMPRESSION FRACTURE
     Route: 048
     Dates: start: 20120918, end: 20120920
  3. OXYCONTIN [Suspect]
     Indication: SPINAL COMPRESSION FRACTURE
     Route: 048
  4. OXYCONTIN [Suspect]
     Indication: SPINAL COMPRESSION FRACTURE
     Route: 048
     Dates: start: 20120918
  5. SERESTA [Suspect]
     Indication: ABNORMAL BEHAVIOUR
     Route: 048
     Dates: end: 20120918

REACTIONS (4)
  - Somnolence [Recovered/Resolved]
  - Fall [Unknown]
  - Back pain [Unknown]
  - Pelvic pain [Unknown]
